FAERS Safety Report 18942793 (Version 1)
Quarter: 2021Q1

REPORT INFORMATION
  Report Type: Spontaneous
  Country: DE (occurrence: DE)
  Receive Date: 20210225
  Receipt Date: 20210225
  Transmission Date: 20210420
  Serious: Yes (Other)
  Sender: FDA-Public Use
  Company Number: DE-GILEAD-2021-0518752

PATIENT
  Sex: Male

DRUGS (1)
  1. RANEXA [Suspect]
     Active Substance: RANOLAZINE
     Indication: PRODUCT USED FOR UNKNOWN INDICATION
     Dosage: 500 MG
     Route: 048
     Dates: start: 201803

REACTIONS (9)
  - Fall [Unknown]
  - Asthenia [Unknown]
  - Loss of consciousness [Unknown]
  - Weight decreased [Unknown]
  - Aphasia [Unknown]
  - Depression [Unknown]
  - Marital problem [Unknown]
  - Paralysis [Unknown]
  - Transient ischaemic attack [Unknown]
